FAERS Safety Report 7771885-6 (Version None)
Quarter: 2011Q3

REPORT INFORMATION
  Report Type: 
  Country: None (occurrence: None)
  Receive Date: 20110922
  Receipt Date: 20110209
  Transmission Date: 20111222
  Serious: No
  Sender: FDA-Public Use
  Company Number: US-ASTRAZENECA-2011SE07894

PATIENT
  Age: 79 Year
  Sex: Female

DRUGS (5)
  1. BLOOD PRESSURE MED [Concomitant]
  2. ARICEPT [Concomitant]
  3. PROZAC [Concomitant]
  4. SEROQUEL [Suspect]
     Indication: AGITATION
     Route: 048
     Dates: start: 20101101
  5. ASPIRIN [Concomitant]

REACTIONS (2)
  - COGNITIVE DISORDER [None]
  - IMPAIRED SELF-CARE [None]
